FAERS Safety Report 6723374-5 (Version None)
Quarter: 2010Q2

REPORT INFORMATION
  Report Type: 
  Country: None (occurrence: None)
  Receive Date: 20100513
  Receipt Date: 20100429
  Transmission Date: 20101027
  Serious: Yes (Other)
  Sender: FDA-Public Use
  Company Number: PHEH2006US10893

PATIENT
  Sex: Female

DRUGS (2)
  1. ZOMETA [Suspect]
     Indication: METASTASES TO BONE
  2. FOSAMAX [Suspect]
     Route: 048

REACTIONS (14)
  - ALLERGIC SINUSITIS [None]
  - ANXIETY [None]
  - ARTHRITIS [None]
  - ASTHMA [None]
  - BRONCHITIS [None]
  - CHRONIC OBSTRUCTIVE PULMONARY DISEASE [None]
  - EMPHYSEMA [None]
  - HYPERTENSION [None]
  - INJURY [None]
  - JOINT SWELLING [None]
  - OSTEONECROSIS OF JAW [None]
  - OSTEOPOROSIS [None]
  - PAIN [None]
  - SEASONAL ALLERGY [None]
